FAERS Safety Report 6819079-2 (Version None)
Quarter: 2010Q3

REPORT INFORMATION
  Report Type: 
  Country: None (occurrence: None)
  Receive Date: 20100707
  Receipt Date: 20100628
  Transmission Date: 20110219
  Serious: Yes (Other)
  Sender: FDA-Public Use
  Company Number: US-JNJFOC-20091101828

PATIENT
  Sex: Female

DRUGS (4)
  1. LEVAQUIN [Suspect]
     Indication: NASOPHARYNGITIS
     Route: 048
  2. LEVAQUIN [Suspect]
     Indication: BACTERIAL INFECTION
     Route: 048
  3. CIPROFLOXACIN [Suspect]
     Indication: NASOPHARYNGITIS
     Route: 048
  4. CIPROFLOXACIN [Suspect]
     Indication: LUNG INFECTION
     Route: 048

REACTIONS (2)
  - MENISCUS LESION [None]
  - TENDON INJURY [None]
